FAERS Safety Report 5468464-2 (Version None)
Quarter: 2007Q3

REPORT INFORMATION
  Report Type: 
  Country: None (occurrence: None)
  Receive Date: 20070926
  Receipt Date: 20070731
  Transmission Date: 20080115
  Serious: No
  Sender: FDA-Public Use
  Company Number: US-BRISTOL-MYERS SQUIBB COMPANY-13807201

PATIENT
  Age: 41 Year
  Sex: Female
  Weight: 86 kg

DRUGS (13)
  1. ORENCIA [Suspect]
     Indication: POLYARTHRITIS
     Route: 042
     Dates: start: 20070521, end: 20070604
  2. XOPENEX [Concomitant]
     Route: 055
  3. ALBUTEROL [Concomitant]
     Route: 055
  4. ASTELIN [Concomitant]
  5. FLONASE [Concomitant]
  6. SINGULAIR [Concomitant]
  7. LEVOTHYROXINE SODIUM [Concomitant]
  8. METHOTREXATE BRAND UNKNOWN [Concomitant]
  9. FOLIC ACID [Concomitant]
  10. FELDENE [Concomitant]
  11. ULTRAM [Concomitant]
  12. LORTAB [Concomitant]
  13. PREDNISONE [Concomitant]

REACTIONS (3)
  - ASTHMA [None]
  - CHEST DISCOMFORT [None]
  - VOMITING [None]
